FAERS Safety Report 5655065-6 (Version None)
Quarter: 2008Q1

REPORT INFORMATION
  Report Type: 
  Country: None (occurrence: None)
  Receive Date: 20080307
  Receipt Date: 20071113
  Transmission Date: 20080703
  Serious: No
  Sender: FDA-Public Use
  Company Number: A0694213A

PATIENT
  Age: 71 Year
  Sex: Female

DRUGS (11)
  1. REQUIP [Suspect]
     Indication: RESTLESS LEGS SYNDROME
     Dosage: 1MG TWICE PER DAY
     Route: 048
  2. SINEMET [Concomitant]
  3. LOTREL [Concomitant]
  4. PLAVIX [Concomitant]
  5. TOPROL [Concomitant]
  6. TEGRETOL [Concomitant]
  7. PROZAC [Concomitant]
  8. WELLBUTRIN [Concomitant]
  9. VYTORIN [Concomitant]
  10. ASMACORT [Concomitant]
  11. PROAIR HFA [Concomitant]

REACTIONS (1)
  - RESTLESS LEGS SYNDROME [None]
